FAERS Safety Report 7387003-2 (Version None)
Quarter: 2011Q1

REPORT INFORMATION
  Report Type: 
  Country: None (occurrence: None)
  Receive Date: 20110323
  Receipt Date: 20110310
  Transmission Date: 20110831
  Serious: Yes (Other)
  Sender: FDA-Public Use
  Company Number: 1000019327

PATIENT
  Sex: Female

DRUGS (1)
  1. CERVIDIL [Suspect]
     Indication: LABOUR INDUCTION
     Dosage: 10 MG, VAGINAL; 20 MG, VAGINAL; 10 MG, VAGINAL
     Route: 067

REACTIONS (2)
  - DEVICE EXPULSION [None]
  - POSTPARTUM HAEMORRHAGE [None]
